FAERS Safety Report 19840214 (Version 1)
Quarter: 2021Q3

REPORT INFORMATION
  Report Type: Spontaneous
  Country: US (occurrence: US)
  Receive Date: 20210916
  Receipt Date: 20210916
  Transmission Date: 20211014
  Serious: Yes (Life-Threatening, Hospitalization)
  Sender: FDA-Public Use
  Company Number: None

PATIENT
  Age: 83 Year
  Sex: Male

DRUGS (1)
  1. WARFARIN [Suspect]
     Active Substance: WARFARIN

REACTIONS (5)
  - Embolism venous [None]
  - International normalised ratio increased [None]
  - Therapy interrupted [None]
  - Arthralgia [None]
  - Haematoma muscle [None]

NARRATIVE: CASE EVENT DATE: 20210805
